FAERS Safety Report 4930863-2 (Version None)
Quarter: 2006Q1

REPORT INFORMATION
  Report Type: 
  Country: None (occurrence: None)
  Receive Date: 20060227
  Receipt Date: 20060210
  Transmission Date: 20060701
  Serious: Yes (Death, Other)
  Sender: FDA-Public Use
  Company Number: 2006-00321

PATIENT
  Sex: Female

DRUGS (1)
  1. VELCADE [Suspect]
     Indication: MULTIPLE MYELOMA
     Dates: start: 20040526, end: 20040806

REACTIONS (5)
  - HYPERCALCAEMIA [None]
  - INFECTION [None]
  - PNEUMONIA BACTERIAL [None]
  - RENAL FAILURE [None]
  - RESPIRATORY FAILURE [None]
